FAERS Safety Report 8353767-4 (Version None)
Quarter: 2012Q2

REPORT INFORMATION
  Report Type: 
  Country: None (occurrence: None)
  Receive Date: 20120511
  Receipt Date: 20111028
  Transmission Date: 20120825
  Serious: No
  Sender: FDA-Public Use
  Company Number: US-GLAXOSMITHKLINE-A0951418A

PATIENT
  Sex: Female
  Weight: 115 kg

DRUGS (2)
  1. XELODA [Suspect]
     Indication: BREAST CANCER
     Dosage: 1000MG SEE DOSAGE TEXT
     Route: 048
     Dates: start: 20101001
  2. TYKERB [Suspect]
     Indication: BREAST CANCER
     Dosage: 250MG UNKNOWN
     Route: 065
     Dates: start: 20101001

REACTIONS (2)
  - HYPOAESTHESIA [None]
  - PAIN IN EXTREMITY [None]
